FAERS Safety Report 22227076 (Version 4)
Quarter: 2023Q2

REPORT INFORMATION
  Report Type: Report from Study
  Country: AR (occurrence: AR)
  Receive Date: 20230419
  Receipt Date: 20230502
  Transmission Date: 20230721
  Serious: No
  Sender: FDA-Public Use
  Company Number: AR-002147023-NVSC2023AR088845

PATIENT
  Age: 69 Year
  Sex: Male

DRUGS (1)
  1. MAYZENT [Suspect]
     Active Substance: SIPONIMOD
     Indication: Multiple sclerosis
     Dosage: 2 MG, QD
     Route: 048
     Dates: start: 20160101

REACTIONS (2)
  - Decreased immune responsiveness [Recovered/Resolved]
  - Decreased immune responsiveness [Unknown]

NARRATIVE: CASE EVENT DATE: 20230307
